FAERS Safety Report 19562478 (Version 1)
Quarter: 2021Q3

REPORT INFORMATION
  Report Type: Spontaneous
  Country: BR (occurrence: BR)
  Receive Date: 20210715
  Receipt Date: 20210715
  Transmission Date: 20211014
  Serious: Yes (Hospitalization, Congenital Anomaly, Other)
  Sender: FDA-Public Use
  Company Number: BR-PFIZER INC-2021844661

PATIENT
  Sex: Male
  Weight: 4 kg

DRUGS (6)
  1. TETANUS TOXOID [Concomitant]
     Active Substance: TETANUS TOXOIDS
     Indication: PRENATAL CARE
  2. MISOPROSTOL. [Suspect]
     Active Substance: MISOPROSTOL
     Indication: ABORTION INDUCED
     Dosage: 600 UG, SINGLE
     Route: 064
  3. MISOPROSTOL. [Suspect]
     Active Substance: MISOPROSTOL
     Dosage: 400 UG, SINGLE
     Route: 064
  4. IRON [Concomitant]
     Active Substance: IRON
     Indication: PRENATAL CARE
  5. MISOPROSTOL. [Suspect]
     Active Substance: MISOPROSTOL
     Dosage: 200 UG, SINGLE
     Route: 064
  6. MISOPROSTOL. [Suspect]
     Active Substance: MISOPROSTOL
     Dosage: 1200 UG, SINGLE
     Route: 064

REACTIONS (2)
  - Foetal exposure during pregnancy [Unknown]
  - Skull malformation [Unknown]
